FAERS Safety Report 4830926-6 (Version None)
Quarter: 2005Q4

REPORT INFORMATION
  Report Type: 
  Country: None (occurrence: None)
  Receive Date: 20051114
  Receipt Date: 20051031
  Transmission Date: 20060501
  Serious: Yes (Hospitalization, Other)
  Sender: FDA-Public Use
  Company Number: 2005-11-0023

PATIENT
  Age: 62 Year
  Sex: Male

DRUGS (2)
  1. PEG-INTRON [Suspect]
     Indication: HEPATITIS C
     Dosage: 100 MCG QW ORAL
     Route: 048
     Dates: start: 20050125, end: 20050830
  2. REBETOL [Suspect]
     Indication: HEPATITIS C
     Dosage: 800 MG ORAL
     Route: 048
     Dates: start: 20050125, end: 20050830

REACTIONS (5)
  - COUGH [None]
  - FULL BLOOD COUNT DECREASED [None]
  - HEPATIC NEOPLASM MALIGNANT [None]
  - INTERSTITIAL LUNG DISEASE [None]
  - MALAISE [None]
